FAERS Safety Report 14186142 (Version 1)
Quarter: 2017Q4

REPORT INFORMATION
  Report Type: Spontaneous
  Country: FR (occurrence: FR)
  Receive Date: 20171114
  Receipt Date: 20171114
  Transmission Date: 20180321
  Serious: Yes (Life-Threatening, Hospitalization)
  Sender: FDA-Public Use
  Company Number: FR-CIPLA LTD.-2017FR19856

PATIENT

DRUGS (2)
  1. IRINOTECAN [Suspect]
     Active Substance: IRINOTECAN
     Indication: ALVEOLAR RHABDOMYOSARCOMA
     Dosage: 50 MG/M2, QD FROM DAY 1 TO DAY 5
     Route: 042
  2. TEMOZOLOMIDE. [Suspect]
     Active Substance: TEMOZOLOMIDE
     Indication: ALVEOLAR RHABDOMYOSARCOMA
     Dosage: 125 MG/M2, OS DAILY
     Route: 048

REACTIONS (17)
  - Anaemia [Unknown]
  - Acute kidney injury [Unknown]
  - Diarrhoea [Recovered/Resolved]
  - Thrombocytopenia [Unknown]
  - Hepatocellular injury [Unknown]
  - Enteritis [Unknown]
  - Septic shock [Unknown]
  - Toxicity to various agents [Unknown]
  - Haematotoxicity [Unknown]
  - Dehydration [Unknown]
  - Disease progression [Unknown]
  - Vomiting [Unknown]
  - Neutropenia [Recovered/Resolved]
  - Alveolar rhabdomyosarcoma [Unknown]
  - Gastrointestinal toxicity [Unknown]
  - Diverticulitis [Unknown]
  - Stomatitis [Unknown]
